FAERS Safety Report 13286491 (Version 2)
Quarter: 2017Q1

REPORT INFORMATION
  Report Type: Report from Study
  Country: US (occurrence: US)
  Receive Date: 20170302
  Receipt Date: 20170306
  Transmission Date: 20170428
  Serious: Yes (Hospitalization)
  Sender: FDA-Public Use
  Company Number: US-BAXALTA-2016BLT008771

PATIENT
  Age: 52 Year
  Sex: Female
  Weight: 90.7 kg

DRUGS (15)
  1. HYQVIA [Suspect]
     Active Substance: HUMAN IMMUNOGLOBULIN G\HYALURONIDASE RECOMBINANT HUMAN
     Indication: SELECTIVE IGG SUBCLASS DEFICIENCY
     Dosage: 35 G, 1X A MONTH
     Route: 058
     Dates: start: 201701
  2. RANITIDINE. [Concomitant]
     Active Substance: RANITIDINE
     Indication: IMPAIRED GASTRIC EMPTYING
     Dosage: UNK UNK, 1X A DAY
     Route: 048
  3. PLAQUENIL                          /00072602/ [Concomitant]
     Active Substance: HYDROXYCHLOROQUINE DIPHOSPHATE
     Indication: SYSTEMIC LUPUS ERYTHEMATOSUS
     Dosage: 3 DOSAGE FORMS, 1X A DAY
     Route: 048
  4. PERCOCET                           /00446701/ [Concomitant]
     Active Substance: ACETAMINOPHEN\OXYCODONE HYDROCHLORIDE\OXYCODONE TEREPHTHALATE
     Indication: BACK PAIN
     Dosage: UNK UNK, AS NEEDED
     Route: 048
  5. NEURONTIN [Concomitant]
     Active Substance: GABAPENTIN
     Indication: NEUROPATHY PERIPHERAL
     Dosage: 600 MG, 4X A DAY
     Route: 048
  6. OMEPRAZOLE. [Concomitant]
     Active Substance: OMEPRAZOLE
     Indication: IMPAIRED GASTRIC EMPTYING
     Dosage: UNK UNK, 1X A DAY
     Route: 048
  7. TOPAMAX [Concomitant]
     Active Substance: TOPIRAMATE
     Indication: ESSENTIAL TREMOR
     Dosage: UNK UNK, 1X A DAY
     Route: 048
  8. REGLAN [Concomitant]
     Active Substance: METOCLOPRAMIDE HYDROCHLORIDE
     Indication: IMPAIRED GASTRIC EMPTYING
     Dosage: UNK UNK, 1X A DAY
     Route: 048
  9. SYNTHROID [Concomitant]
     Active Substance: LEVOTHYROXINE SODIUM
     Indication: HYPOTHYROIDISM
     Dosage: 100 MCG, 1X A DAY
     Route: 048
  10. HYQVIA [Suspect]
     Active Substance: HUMAN IMMUNOGLOBULIN G\HYALURONIDASE RECOMBINANT HUMAN
     Indication: PRIMARY IMMUNODEFICIENCY SYNDROME
     Dosage: 35 G, 1X A MONTH
     Route: 058
     Dates: start: 201605
  11. METHOTREXATE. [Concomitant]
     Active Substance: METHOTREXATE
     Indication: SYSTEMIC LUPUS ERYTHEMATOSUS
     Dosage: 2.5 G,(8 PILLS)  1X A WEEK
     Route: 048
     Dates: start: 2015
  12. DURAGESIC MAT [Concomitant]
     Active Substance: FENTANYL
     Indication: PAIN
     Dosage: 1 PATCH, EVERY 3 DAYS
     Route: 062
  13. INDERAL [Concomitant]
     Active Substance: PROPRANOLOL HYDROCHLORIDE
     Indication: TACHYCARDIA
     Dosage: UNK
     Route: 048
  14. ASPRIN [Concomitant]
     Active Substance: ASPIRIN
     Indication: PROPHYLAXIS
     Dosage: UNK UNK, 1X A DAY
     Route: 048
     Dates: start: 2016
  15. PREDNISONE. [Concomitant]
     Active Substance: PREDNISONE
     Indication: SYSTEMIC LUPUS ERYTHEMATOSUS
     Dosage: 30 MG, 1X A DAY
     Route: 048

REACTIONS (7)
  - Dehydration [Recovered/Resolved]
  - Nausea [Recovered/Resolved]
  - Systemic lupus erythematosus [Recovered/Resolved]
  - Hypotension [Recovered/Resolved]
  - Nephrolithiasis [Recovered/Resolved]
  - Vomiting [Recovered/Resolved]
  - Headache [Recovered/Resolved]

NARRATIVE: CASE EVENT DATE: 201605
